FAERS Safety Report 12238192 (Version 1)
Quarter: 2016Q2

REPORT INFORMATION
  Report Type: Report from Study
  Country: US (occurrence: US)
  Receive Date: 20160405
  Receipt Date: 20160405
  Transmission Date: 20160815
  Serious: Yes (Other)
  Sender: FDA-Public Use
  Company Number: US-AMGEN-USASL2016039462

PATIENT
  Age: 78 Year
  Sex: Female

DRUGS (1)
  1. REPATHA [Suspect]
     Active Substance: EVOLOCUMAB
     Indication: HYPERCHOLESTEROLAEMIA
     Dosage: 140 MG, Q2WK
     Route: 065
     Dates: start: 20160318

REACTIONS (6)
  - Asthenia [Unknown]
  - Suffocation feeling [Unknown]
  - Tremor [Recovering/Resolving]
  - Dyspnoea [Recovering/Resolving]
  - Activities of daily living impaired [Unknown]
  - Malaise [Unknown]

NARRATIVE: CASE EVENT DATE: 20160321
